FAERS Safety Report 19705151 (Version 1)
Quarter: 2021Q3

REPORT INFORMATION
  Report Type: Spontaneous
  Country: CA (occurrence: CA)
  Receive Date: 20210816
  Receipt Date: 20210816
  Transmission Date: 20211014
  Serious: Yes (Other)
  Sender: FDA-Public Use
  Company Number: CA-INSMED, INC.-2021-09206-CA

PATIENT
  Age: 53 Year
  Sex: Male

DRUGS (8)
  1. RIFABUTIN. [Concomitant]
     Active Substance: RIFABUTIN
     Indication: MYCOBACTERIUM AVIUM COMPLEX INFECTION
  2. AZITHROMYCIN ANHYDROUS. [Concomitant]
     Active Substance: AZITHROMYCIN ANHYDROUS
     Indication: MYCOBACTERIUM AVIUM COMPLEX INFECTION
  3. CEFOXITIN [Concomitant]
     Active Substance: CEFOXITIN SODIUM
     Indication: MYCOBACTERIUM ABSCESSUS INFECTION
  4. LIPOSOMAL AMIKACIN [Suspect]
     Active Substance: AMIKACIN SULFATE
     Indication: MYCOBACTERIUM ABSCESSUS INFECTION
     Dosage: UNK
     Route: 065
  5. RITUXIMAB. [Concomitant]
     Active Substance: RITUXIMAB
     Indication: MYCOBACTERIUM ABSCESSUS INFECTION
     Dosage: AT MONTHS 0, 1, 6, AND 12
  6. LIPOSOMAL AMIKACIN [Suspect]
     Active Substance: AMIKACIN SULFATE
     Indication: MYCOBACTERIUM AVIUM COMPLEX INFECTION
  7. LINEZOLID. [Concomitant]
     Active Substance: LINEZOLID
     Indication: MYCOBACTERIUM ABSCESSUS INFECTION
  8. ETHAMBUTOL [Concomitant]
     Active Substance: ETHAMBUTOL HYDROCHLORIDE
     Indication: MYCOBACTERIUM AVIUM COMPLEX INFECTION
     Dosage: UNK

REACTIONS (2)
  - Nephropathy toxic [Unknown]
  - Toxicity to various agents [Unknown]
